FAERS Safety Report 12334437 (Version 1)
Quarter: 2016Q2

REPORT INFORMATION
  Report Type: Spontaneous
  Country: US (occurrence: US)
  Receive Date: 20160504
  Receipt Date: 20160504
  Transmission Date: 20160815
  Serious: No
  Sender: FDA-Public Use
  Company Number: US-ROCHE-ITM201504IM014467

PATIENT
  Sex: Male
  Weight: 77.18 kg

DRUGS (2)
  1. ESBRIET [Suspect]
     Active Substance: PIRFENIDONE
     Indication: IDIOPATHIC PULMONARY FIBROSIS
     Route: 048
     Dates: start: 20150318
  2. ESBRIET [Suspect]
     Active Substance: PIRFENIDONE
     Dosage: 267 MG
     Route: 048
     Dates: start: 20150316

REACTIONS (5)
  - Decreased appetite [Not Recovered/Not Resolved]
  - Dyspnoea [Unknown]
  - Malaise [Unknown]
  - Nausea [Unknown]
  - Blood potassium decreased [Unknown]
